FAERS Safety Report 4873619-1 (Version None)
Quarter: 2006Q1

REPORT INFORMATION
  Report Type: 
  Country: None (occurrence: None)
  Receive Date: 20060105
  Receipt Date: 20051215
  Transmission Date: 20060701
  Serious: Yes (Hospitalization)
  Sender: FDA-Public Use
  Company Number: JP-MERCK-0512USA02923

PATIENT
  Age: 13 Year
  Sex: Female

DRUGS (9)
  1. PEPCID [Suspect]
     Route: 042
     Dates: start: 20051205, end: 20051213
  2. LEVOMEPROMAZINE [Suspect]
     Route: 041
     Dates: start: 20051210, end: 20051210
  3. LEPETAN [Suspect]
     Indication: ANALGESIC EFFECT
     Route: 065
     Dates: start: 20051208, end: 20051211
  4. SOLU-MEDROL [Concomitant]
     Route: 065
     Dates: start: 20051205, end: 20051205
  5. SOLU-MEDROL [Concomitant]
     Route: 041
     Dates: start: 20051206, end: 20051211
  6. PROGRAF [Concomitant]
     Route: 048
     Dates: start: 20051205
  7. FLUMARIN [Concomitant]
     Route: 041
     Dates: start: 20051205, end: 20051208
  8. SOSEGON [Concomitant]
     Route: 041
  9. URSO [Concomitant]
     Route: 048

REACTIONS (1)
  - LIVER DISORDER [None]
